FAERS Safety Report 8496257-0 (Version None)
Quarter: 2012Q3

REPORT INFORMATION
  Report Type: 
  Country: None (occurrence: None)
  Receive Date: 20120709
  Receipt Date: 20120629
  Transmission Date: 20120928
  Serious: Yes (Other)
  Sender: FDA-Public Use
  Company Number: US-ASTRAZENECA-2011SE54529

PATIENT
  Age: 81 Year
  Sex: Female

DRUGS (1)
  1. CRESTOR [Suspect]
     Indication: BLOOD CHOLESTEROL ABNORMAL
     Route: 048
     Dates: start: 20040101

REACTIONS (5)
  - CAROTID ARTERY STENOSIS [None]
  - ACCIDENT [None]
  - LOWER LIMB FRACTURE [None]
  - HEAD INJURY [None]
  - CONCUSSION [None]
